FAERS Safety Report 4655469-4 (Version None)
Quarter: 2005Q2

REPORT INFORMATION
  Report Type: 
  Country: None (occurrence: None)
  Receive Date: 20050506
  Receipt Date: 20050313
  Transmission Date: 20051028
  Serious: Yes (Hospitalization, Other)
  Sender: FDA-Public Use
  Company Number: HQWYE147915MAR05

PATIENT
  Sex: Female

DRUGS (2)
  1. ENBREL [Suspect]
     Indication: RHEUMATOID ARTHRITIS
     Dosage: NOT PROVIDED
     Route: 058
     Dates: start: 20010401, end: 20040322
  2. ENBREL [Suspect]
     Route: 058
     Dates: start: 20040318, end: 20040322

REACTIONS (2)
  - DYSPHONIA [None]
  - TUBERCULOSIS [None]
